FAERS Safety Report 5522454-X (Version None)
Quarter: 2007Q4

REPORT INFORMATION
  Report Type: 
  Country: None (occurrence: None)
  Receive Date: 20071120
  Receipt Date: 20071115
  Transmission Date: 20080405
  Serious: Yes (Death, Life-Threatening, Other)
  Sender: FDA-Public Use
  Company Number: HQWYE348122NOV06

PATIENT
  Sex: Male
  Weight: 65 kg

DRUGS (6)
  1. MYLOTARG [Suspect]
     Indication: ACUTE MYELOID LEUKAEMIA RECURRENT
     Route: 041
     Dates: start: 20061023, end: 20061023
  2. AMIKACIN [Concomitant]
     Dosage: 800 MG/DAY
     Route: 041
     Dates: start: 20061027, end: 20061104
  3. CIPROFLOXACIN [Concomitant]
     Dosage: 1200 MG/DAY
     Route: 041
     Dates: start: 20061026, end: 20061104
  4. ZYVOX [Concomitant]
     Dosage: 2400 MG/DAY
     Route: 041
     Dates: start: 20061023, end: 20061027
  5. ZYVOX [Concomitant]
     Dosage: 2400 MG/DAY
     Route: 041
     Dates: start: 20061108, end: 20061110
  6. AZACTAM [Concomitant]
     Dosage: 4 G/DAY
     Route: 041
     Dates: start: 20061025, end: 20061027

REACTIONS (4)
  - BLOOD BILIRUBIN INCREASED [None]
  - NEUTROPHIL COUNT DECREASED [None]
  - SEPSIS [None]
  - WHITE BLOOD CELL COUNT DECREASED [None]
